FAERS Safety Report 11123470 (Version 12)
Quarter: 2015Q4

REPORT INFORMATION
  Report Type: Report from Study
  Country: US (occurrence: US)
  Receive Date: 20150519
  Receipt Date: 20151123
  Transmission Date: 20160304
  Serious: Yes (Death, Hospitalization)
  Sender: FDA-Public Use
  Company Number: US-ACTELION-A-US2015-117411

PATIENT
  Age: 69 Year
  Sex: Male

DRUGS (4)
  1. VENTAVIS [Suspect]
     Active Substance: ILOPROST
     Indication: PULMONARY ARTERIAL HYPERTENSION
     Dosage: 5 MCG, 6-9X/DAY
     Route: 055
     Dates: start: 20150419, end: 20150719
  2. OPSUMIT [Suspect]
     Active Substance: MACITENTAN
     Indication: PULMONARY ARTERIAL HYPERTENSION
     Dosage: 10 MG, QD
     Route: 048
     Dates: start: 20150419, end: 20150719
  3. VELETRI [Suspect]
     Active Substance: EPOPROSTENOL
     Indication: PULMONARY ARTERIAL HYPERTENSION
     Dosage: 20 NG/KG, PER MIN
     Route: 042
  4. VENTAVIS [Suspect]
     Active Substance: ILOPROST
     Dosage: 2.5 MCG, 6-9X/DAY
     Route: 055

REACTIONS (25)
  - Aspiration pleural cavity [Recovered/Resolved]
  - Dry mouth [Unknown]
  - Malaise [Fatal]
  - Alanine aminotransferase increased [Recovered/Resolved]
  - Pulmonary arterial hypertension [Fatal]
  - Hypotension [Fatal]
  - Dyspnoea exertional [Fatal]
  - Oedema [Fatal]
  - Aspartate aminotransferase increased [Recovered/Resolved]
  - Fatigue [Fatal]
  - Oedema peripheral [Fatal]
  - Abdominal distension [Fatal]
  - Cough [Unknown]
  - Dyspnoea [Fatal]
  - Respiratory distress [Fatal]
  - Chest pain [Fatal]
  - Pleural effusion [Recovered/Resolved]
  - Right ventricular failure [Recovered/Resolved]
  - Pneumonia [Recovering/Resolving]
  - Condition aggravated [Recovered/Resolved]
  - Headache [Unknown]
  - Cardiogenic shock [Recovered/Resolved]
  - Cardiac arrest [Fatal]
  - Productive cough [Recovering/Resolving]
  - Secretion discharge [Unknown]

NARRATIVE: CASE EVENT DATE: 20150429
